FAERS Safety Report 23730735 (Version 1)
Quarter: 2024Q2

REPORT INFORMATION
  Report Type: Spontaneous
  Country: FR (occurrence: FR)
  Receive Date: 20240411
  Receipt Date: 20240411
  Transmission Date: 20240716
  Serious: Yes (Death, Other)
  Sender: FDA-Public Use
  Company Number: FR-AMGEN-FRASP2024068182

PATIENT

DRUGS (3)
  1. BEVACIZUMAB [Suspect]
     Active Substance: BEVACIZUMAB
     Indication: Hepatocellular carcinoma
     Dosage: UNK
     Route: 065
  2. ATEZOLIZUMAB [Suspect]
     Active Substance: ATEZOLIZUMAB
     Indication: Hepatocellular carcinoma
     Route: 065
  3. SORAFENIB [Concomitant]
     Active Substance: SORAFENIB

REACTIONS (9)
  - Hepatocellular carcinoma [Fatal]
  - Liver disorder [Fatal]
  - Adverse event [Fatal]
  - Cardiovascular disorder [Fatal]
  - COVID-19 [Fatal]
  - Portal hypertension [Unknown]
  - Ascites [Unknown]
  - Oesophageal varices haemorrhage [Unknown]
  - Off label use [Unknown]
